FAERS Safety Report 7997425-4 (Version None)
Quarter: 2011Q4

REPORT INFORMATION
  Report Type: 
  Country: None (occurrence: None)
  Receive Date: 20111221
  Receipt Date: 20111216
  Transmission Date: 20120403
  Serious: Yes (Other)
  Sender: FDA-Public Use
  Company Number: DE-ROCHE-1023314

PATIENT
  Age: 55 Year
  Sex: Male

DRUGS (1)
  1. XELODA [Suspect]
     Indication: METASTATIC GASTRIC CANCER

REACTIONS (3)
  - LIPASE INCREASED [None]
  - PALMAR-PLANTAR ERYTHRODYSAESTHESIA SYNDROME [None]
  - POLYNEUROPATHY [None]
